FAERS Safety Report 17010455 (Version 1)
Quarter: 2019Q4

REPORT INFORMATION
  Report Type: Spontaneous
  Country: GB (occurrence: GB)
  Receive Date: 20191108
  Receipt Date: 20191108
  Transmission Date: 20200122
  Serious: Yes (Other)
  Sender: FDA-Public Use
  Company Number: GB-ASTRAZENECA-2019SF55036

PATIENT
  Age: 53 Year
  Sex: Female
  Weight: 83 kg

DRUGS (10)
  1. ATORVASTATIN [Concomitant]
     Active Substance: ATORVASTATIN
     Indication: BLOOD CHOLESTEROL INCREASED
     Dates: start: 20160617, end: 20180201
  2. METFORMIN [Concomitant]
     Active Substance: METFORMIN HYDROCHLORIDE
     Dosage: 2 DF DAILY WITH EVENING MEAL
     Dates: start: 20170303
  3. PIOGLITAZONE. [Concomitant]
     Active Substance: PIOGLITAZONE
     Indication: BLOOD GLUCOSE ABNORMAL
     Dates: start: 20170720, end: 20180201
  4. ORLISTAT. [Concomitant]
     Active Substance: ORLISTAT
     Indication: WEIGHT ABNORMAL
     Dates: start: 20180201
  5. COCODAMOL [Concomitant]
     Active Substance: ACETAMINOPHEN\CODEINE PHOSPHATE
     Indication: PAIN
     Dosage: 1-2 FOUR TIMES DAILY
     Dates: start: 20180110, end: 20180124
  6. EZETIMIBE. [Concomitant]
     Active Substance: EZETIMIBE
     Indication: BLOOD CHOLESTEROL INCREASED
     Dates: start: 20180201
  7. DAPAGLIFLOZIN. [Suspect]
     Active Substance: DAPAGLIFLOZIN
     Route: 048
     Dates: start: 20180201
  8. EXENATIDE. [Concomitant]
     Active Substance: EXENATIDE
     Dosage: USE TWICE A DAY AT LEAST 15- 1 HR BEFORE FOOD
     Dates: start: 20170609, end: 20180110
  9. CLOTRIMAZOLE. [Concomitant]
     Active Substance: CLOTRIMAZOLE
     Dosage: USE PESSARY AT NIGHT. APPLY CREAM 2-3 TIMES A DAY
     Dates: start: 20180201, end: 20180208
  10. FEXOFENADINE [Concomitant]
     Active Substance: FEXOFENADINE HYDROCHLORIDE
     Indication: HYPERSENSITIVITY
     Dosage: 1.0DF AS REQUIRED
     Dates: start: 20180222

REACTIONS (1)
  - Pruritus [Unknown]

NARRATIVE: CASE EVENT DATE: 20180222
